FAERS Safety Report 10576473 (Version 5)
Quarter: 2015Q1

REPORT INFORMATION
  Report Type: Report from Study
  Country: US (occurrence: US)
  Receive Date: 20141111
  Receipt Date: 20150122
  Transmission Date: 20150720
  Serious: Yes (Death, Hospitalization, Other)
  Sender: FDA-Public Use
  Company Number: US-ALEXION PHARMACEUTICALS INC-A201404210

PATIENT

DRUGS (2)
  1. VELCADE [Suspect]
     Active Substance: BORTEZOMIB
     Indication: PLASMA CELL MYELOMA
     Route: 065
  2. SOLIRIS [Suspect]
     Active Substance: ECULIZUMAB
     Indication: HAEMOLYTIC URAEMIC SYNDROME
     Dosage: UNK MG, UNK
     Route: 042
     Dates: start: 201410

REACTIONS (8)
  - Surgery [Unknown]
  - Diverticulitis [Unknown]
  - Condition aggravated [Not Recovered/Not Resolved]
  - Immunoglobulins decreased [Unknown]
  - Unevaluable event [Unknown]
  - Death [Fatal]
  - Intestinal perforation [Unknown]
  - Thrombotic microangiopathy [Not Recovered/Not Resolved]

NARRATIVE: CASE EVENT DATE: 201410
